FAERS Safety Report 9603152 (Version 1)
Quarter: 2013Q4

REPORT INFORMATION
  Report Type: Spontaneous
  Country: JP (occurrence: JP)
  Receive Date: 20131007
  Receipt Date: 20131007
  Transmission Date: 20140711
  Serious: Yes (Other)
  Sender: FDA-Public Use
  Company Number: JP-ACTAVIS-2013-17187

PATIENT
  Age: 50 Year
  Sex: Female

DRUGS (7)
  1. DOCETAXEL (ACTAVIS) [Suspect]
     Indication: MALIGNANT ASCITES
     Dosage: 56 MG/BODY, DAY 1, 3 COURSES
     Route: 065
     Dates: start: 200606
  2. DOCETAXEL (ACTAVIS) [Suspect]
     Dosage: 40 MG/BODY, DAY 1 AND DAY 7, 2 COURSES
     Route: 065
  3. DOCETAXEL (ACTAVIS) [Suspect]
     Dosage: 60 MG/BODY, DAY 1, 13 COURSES
     Route: 065
     Dates: start: 200804
  4. TEGAFUR [Suspect]
     Indication: MALIGNANT ASCITES
     Dosage: 100 MG/BODY, 2 WEEKS ADMIN, 1 WEEK REST, 3 COURSES
     Route: 065
     Dates: start: 200606
  5. TEGAFUR [Suspect]
     Dosage: 80 MG/BODY, 2 WEEKS ADMIN, 1 WEEK REST, 2 COURSES
     Route: 065
  6. TEGAFUR [Suspect]
     Dosage: 100 MG/BODY, 2 WEEKS ADMIN, 1 WEEK REST, 13 COURSES
     Route: 065
     Dates: start: 200804
  7. TEGAFUR URACIL [Suspect]
     Indication: MALIGNANT ASCITES
     Dosage: UNK
     Route: 065

REACTIONS (3)
  - Mouth ulceration [Unknown]
  - Dysphagia [Unknown]
  - Vision blurred [Unknown]
